FAERS Safety Report 20708987 (Version 1)
Quarter: 2022Q2

REPORT INFORMATION
  Report Type: Other
  Country: HK (occurrence: None)
  Receive Date: 20220414
  Receipt Date: 20220414
  Transmission Date: 20220721
  Serious: Yes (Other)
  Sender: FDA-Public Use
  Company Number: HK-ROCHE-3073877

PATIENT

DRUGS (1)
  1. RITUXIMAB [Suspect]
     Active Substance: RITUXIMAB
     Indication: Nephrotic syndrome
     Dosage: DEPENDING ON LOCAL POLICES, RITUXIMAB DOSING RANGED FROM 375 TO 1500MG/M2 PER COURSE, I.E. 375MG/M2
     Route: 041

REACTIONS (1)
  - Rhabdomyosarcoma [Unknown]
